FAERS Safety Report 8607744-6 (Version None)
Quarter: 2012Q3

REPORT INFORMATION
  Report Type: 
  Country: None (occurrence: None)
  Receive Date: 20120821
  Receipt Date: 20120810
  Transmission Date: 20120928
  Serious: Yes (Other)
  Sender: FDA-Public Use
  Company Number: PHHY2012AU070932

PATIENT
  Sex: Female

DRUGS (4)
  1. CLOZARIL [Suspect]
     Dosage: UNK
     Route: 048
  2. CLOZARIL [Suspect]
     Dosage: 300 MG, DAILY
  3. HEROIN [Suspect]
  4. ABILIFY [Concomitant]

REACTIONS (1)
  - DRUG ABUSE [None]
